FAERS Safety Report 9539203 (Version 1)
Quarter: 2013Q3

REPORT INFORMATION
  Report Type: Spontaneous
  Country: US (occurrence: None)
  Receive Date: 20130917
  Receipt Date: 20130917
  Transmission Date: 20140515
  Serious: Yes (Other)
  Sender: FDA-Public Use
  Company Number: 2013P1019194

PATIENT
  Age: 36 Year
  Sex: Male
  Weight: 81.65 kg

DRUGS (7)
  1. PHENOBARBITAL [Suspect]
     Indication: CONVULSION
     Route: 048
     Dates: start: 1976, end: 201307
  2. PHENOBARBITAL [Suspect]
     Indication: LENNOX-GASTAUT SYNDROME
     Route: 048
     Dates: start: 1976, end: 201307
  3. PHENOBARBITAL [Suspect]
     Indication: CONVULSION
     Dosage: 32.4 MG; HS; PO
     Route: 048
     Dates: start: 201307, end: 20130901
  4. PHENOBARBITAL [Suspect]
     Indication: LENNOX-GASTAUT SYNDROME
     Dosage: 32.4 MG; HS; PO
     Route: 048
     Dates: start: 201307, end: 20130901
  5. CARBAMAZEPINE [Concomitant]
  6. LEVETIRACETAM [Concomitant]
  7. LOVAZA [Concomitant]

REACTIONS (13)
  - Convulsion [None]
  - Aggression [None]
  - Insomnia [None]
  - Abnormal behaviour [None]
  - Somnolence [None]
  - Staring [None]
  - Agitation [None]
  - Inappropriate affect [None]
  - Dyskinesia [None]
  - Somnolence [None]
  - Abdominal pain upper [None]
  - Unevaluable event [None]
  - Malaise [None]
